FAERS Safety Report 7528343-3 (Version None)
Quarter: 2011Q2

REPORT INFORMATION
  Report Type: 
  Country: None (occurrence: None)
  Receive Date: 20110607
  Receipt Date: 20110314
  Transmission Date: 20111010
  Serious: No
  Sender: FDA-Public Use
  Company Number: US-ASTRAZENECA-2011SE14600

PATIENT
  Sex: Male

DRUGS (2)
  1. DIAZEPAM [Interacting]
     Dosage: UNKNOWN
     Route: 065
  2. PRILOSEC OTC [Suspect]
     Route: 048

REACTIONS (2)
  - NO ADVERSE EVENT [None]
  - LABELLED DRUG-DRUG INTERACTION MEDICATION ERROR [None]
